FAERS Safety Report 12083832 (Version 1)
Quarter: 2016Q1

REPORT INFORMATION
  Report Type: Spontaneous
  Country: US (occurrence: US)
  Receive Date: 20160217
  Receipt Date: 20160217
  Transmission Date: 20160526
  Serious: Yes (Other)
  Sender: FDA-Public Use
  Company Number: US-BAYER-2016-028834

PATIENT
  Age: 72 Year
  Sex: Female
  Weight: 73.92 kg

DRUGS (10)
  1. ALEVE [Suspect]
     Active Substance: NAPROXEN SODIUM
     Dosage: UNK
     Route: 048
  2. LOMITAPIDE [Suspect]
     Active Substance: LOMITAPIDE MESYLATE
     Indication: TYPE IIA HYPERLIPIDAEMIA
     Dosage: 5 MG, QD
     Route: 048
     Dates: start: 20150609, end: 20150703
  3. IBUPROFEN. [Suspect]
     Active Substance: IBUPROFEN
  4. HYZAAR [Concomitant]
     Active Substance: HYDROCHLOROTHIAZIDE\LOSARTAN POTASSIUM
     Route: 048
  5. BAYER GENUINE ASPIRIN [Suspect]
     Active Substance: ASPIRIN
  6. PLAVIX [Concomitant]
     Active Substance: CLOPIDOGREL BISULFATE
  7. DILTIAZEM HYDROCHLORIDE EXTENDED RELEASE [Concomitant]
     Active Substance: DILTIAZEM HYDROCHLORIDE
  8. CALCIUM D [Concomitant]
     Active Substance: CALCIUM\VITAMIN D
  9. ZETIA [Concomitant]
     Active Substance: EZETIMIBE
  10. LOMITAPIDE [Suspect]
     Active Substance: LOMITAPIDE MESYLATE
     Indication: TYPE IIA HYPERLIPIDAEMIA
     Dosage: 5 MG, QD
     Route: 048
     Dates: start: 2015, end: 201508

REACTIONS (11)
  - Overdose [Unknown]
  - Asthenia [Not Recovered/Not Resolved]
  - Product use issue [None]
  - Blood potassium decreased [Unknown]
  - Mood swings [Unknown]
  - Weight decreased [None]
  - Salivary hypersecretion [Recovered/Resolved]
  - Low density lipoprotein abnormal [None]
  - Nausea [Recovered/Resolved]
  - Dizziness [Recovered/Resolved]
  - Diarrhoea [Recovered/Resolved]

NARRATIVE: CASE EVENT DATE: 201506
